FAERS Safety Report 7698994-4 (Version None)
Quarter: 2011Q3

REPORT INFORMATION
  Report Type: 
  Country: None (occurrence: None)
  Receive Date: 20110819
  Receipt Date: 20110812
  Transmission Date: 20111222
  Serious: Yes (Other)
  Sender: FDA-Public Use
  Company Number: US-CEPHALON-2011004272

PATIENT
  Age: 43 Year
  Sex: Female
  Weight: 73 kg

DRUGS (5)
  1. NUVIGIL [Suspect]
     Indication: CIRCADIAN RHYTHM SLEEP DISORDER
     Route: 048
     Dates: start: 20110807, end: 20110811
  2. CELEXA [Concomitant]
     Indication: BIPOLAR DISORDER
     Route: 048
  3. NUVIGIL [Suspect]
  4. LEVOTHYROXINE SODIUM [Concomitant]
     Indication: THYROID DISORDER
     Route: 048
  5. TOPAMAX [Concomitant]
     Indication: BIPOLAR DISORDER
     Route: 048

REACTIONS (6)
  - OCULAR HYPERAEMIA [None]
  - FEELING ABNORMAL [None]
  - BLISTER [None]
  - DRUG DIVERSION [None]
  - RASH PRURITIC [None]
  - DRY EYE [None]
